FAERS Safety Report 16844157 (Version 1)
Quarter: 2019Q3

REPORT INFORMATION
  Report Type: Spontaneous
  Country: GR (occurrence: GR)
  Receive Date: 20190924
  Receipt Date: 20190924
  Transmission Date: 20191005
  Serious: Yes (Disabling)
  Sender: FDA-Public Use
  Company Number: GR-PFIZER INC-2019406823

PATIENT
  Age: 38 Year
  Sex: Female
  Weight: 57 kg

DRUGS (4)
  1. TOPISTIN [CIPROFLOXACIN HYDROCHLORIDE] [Concomitant]
     Dosage: 2 DF, 1X/DAY
     Route: 048
     Dates: start: 20190827
  2. DALACIN C [Suspect]
     Active Substance: CLINDAMYCIN PHOSPHATE
     Dosage: 300 MG, 3X/DAY
     Route: 048
     Dates: start: 20190827, end: 20190828
  3. CIPROXIN [CIPROFLOXACIN] [Concomitant]
     Dosage: 4 ML, UNK
     Route: 050
     Dates: start: 20190827
  4. FLAGYL [Concomitant]
     Active Substance: METRONIDAZOLE\METRONIDAZOLE HYDROCHLORIDE
     Dosage: 4 ML, UNK
     Route: 050
     Dates: start: 20190827

REACTIONS (2)
  - Arthralgia [Recovered/Resolved with Sequelae]
  - Hypoaesthesia [Unknown]

NARRATIVE: CASE EVENT DATE: 20190827
